FAERS Safety Report 9401248 (Version 1)
Quarter: 2013Q3

REPORT INFORMATION
  Report Type: Spontaneous
  Country: CO (occurrence: CO)
  Receive Date: 20130715
  Receipt Date: 20130715
  Transmission Date: 20140515
  Serious: Yes (Other)
  Sender: FDA-Public Use
  Company Number: CO-PFIZER INC-2013206345

PATIENT
  Age: 68 Year
  Sex: Female

DRUGS (7)
  1. LYRICA [Suspect]
     Indication: NEURALGIA
     Dosage: 75 MG, AS NEEDED
     Route: 048
     Dates: start: 2009, end: 201110
  2. LYRICA [Suspect]
     Dosage: 75 MG, AS NEEDED
     Route: 048
     Dates: start: 201205
  3. PIROXICAM [Concomitant]
     Indication: THYROID DISORDER
     Dosage: 75 MG, 1X/DAY
     Route: 048
     Dates: start: 1992
  4. TRIMEBUTINE [Concomitant]
     Indication: PROPHYLAXIS
     Dosage: 300 MG, 3X/DAY
     Route: 048
     Dates: start: 201202
  5. OMEGA 3 [Concomitant]
     Indication: PROPHYLAXIS
     Dosage: UNK
     Route: 048
     Dates: start: 201301
  6. MAGNESIUM + E-VITAMIN ^RATIOPHARM^ [Concomitant]
     Indication: PROPHYLAXIS
     Dosage: 2000 IU, 1X/DAY
     Route: 048
     Dates: start: 201301
  7. CALCIUM CITRATE/COLECALCIFEROL [Concomitant]
     Indication: PROPHYLAXIS
     Dosage: UNK
     Route: 048
     Dates: start: 20130225

REACTIONS (3)
  - Rectal cancer [Unknown]
  - Faecal incontinence [Unknown]
  - Somnolence [Not Recovered/Not Resolved]
